FAERS Safety Report 13950830 (Version 1)
Quarter: 2017Q3

REPORT INFORMATION
  Report Type: Spontaneous
  Country: US (occurrence: US)
  Receive Date: 20170908
  Receipt Date: 20170908
  Transmission Date: 20171128
  Serious: No
  Sender: FDA-Public Use
  Company Number: US-ROCHE-1131336

PATIENT
  Age: 79 Year
  Sex: Female

DRUGS (4)
  1. RITUXAN [Suspect]
     Active Substance: RITUXIMAB
     Route: 050
     Dates: start: 19990525
  2. RITUXAN [Suspect]
     Active Substance: RITUXIMAB
     Route: 050
     Dates: start: 19990608
  3. RITUXAN [Suspect]
     Active Substance: RITUXIMAB
     Route: 050
     Dates: start: 19990601
  4. RITUXAN [Suspect]
     Active Substance: RITUXIMAB
     Indication: CHRONIC LYMPHOCYTIC LEUKAEMIA
     Route: 050
     Dates: start: 19990518

REACTIONS (1)
  - Therapy partial responder [Unknown]

NARRATIVE: CASE EVENT DATE: 20000718
